FAERS Safety Report 11175166 (Version 1)
Quarter: 2015Q2

REPORT INFORMATION
  Report Type: Spontaneous
  Country: GB (occurrence: GB)
  Receive Date: 20150609
  Receipt Date: 20150609
  Transmission Date: 20150821
  Serious: Yes (Hospitalization)
  Sender: FDA-Public Use
  Company Number: GB-UCBSA-2015017986

PATIENT
  Age: 78 Year
  Sex: Male
  Weight: 64 kg

DRUGS (10)
  1. FINASTERIDE. [Suspect]
     Active Substance: FINASTERIDE
     Indication: BENIGN PROSTATIC HYPERPLASIA
     Dosage: 1 MG, ONCE DAILY (QD)
     Dates: start: 20010806
  2. RIVAROXABAN [Concomitant]
     Active Substance: RIVAROXABAN
     Indication: ATRIAL FIBRILLATION
     Dosage: 20 MG, ONCE DAILY (QD)
     Dates: start: 20141202
  3. ISOSORBIDE UNSPECIFIED [Suspect]
     Active Substance: ISOSORBIDE
     Dosage: UNK
  4. INDORAMIN [Suspect]
     Active Substance: INDORAMIN
     Indication: PROPHYLAXIS
     Dosage: 20 MG, ONCE DAILY (QD)
     Dates: start: 19971112
  5. TAMSULOSIN [Suspect]
     Active Substance: TAMSULOSIN
     Indication: URINARY RETENTION
     Dosage: 400 MG, ONCE DAILY (QD)
     Dates: start: 20150202
  6. ISOSORBIDE UNSPECIFIED [Suspect]
     Active Substance: ISOSORBIDE
     Indication: PROPHYLAXIS
     Dosage: 90 MG, ONCE DAILY (QD)
     Dates: start: 20110315
  7. BISOPROLOL [Suspect]
     Active Substance: BISOPROLOL
     Indication: HYPERTENSION
     Dosage: 5 MG, ONCE DAILY (QD)
     Dates: start: 20111006
  8. BUMETANIDE. [Suspect]
     Active Substance: BUMETANIDE
     Indication: OEDEMA
     Dosage: 1 MG, ONCE DAILY (QD)
     Dates: start: 20150323
  9. ATORVASTATIN [Concomitant]
     Active Substance: ATORVASTATIN
     Indication: HYPERCHOLESTEROLAEMIA
     Dosage: 80 MG, ONCE DAILY (QD)
     Dates: start: 20111209
  10. SPIRONOLACTONE. [Suspect]
     Active Substance: SPIRONOLACTONE
     Indication: OEDEMA
     Dosage: 25 MG, ONCE DAILY (QD)
     Dates: start: 20150325

REACTIONS (1)
  - Laceration [Recovered/Resolved]

NARRATIVE: CASE EVENT DATE: 20150429
